FAERS Safety Report 16090926 (Version 2)
Quarter: 2019Q2

REPORT INFORMATION
  Report Type: Spontaneous
  Country: US (occurrence: US)
  Receive Date: 20190319
  Receipt Date: 20190411
  Transmission Date: 20190711
  Serious: Yes (Hospitalization, Other)
  Sender: FDA-Public Use
  Company Number: US-SAOL THERAPEUTICS-2019SAO00086

PATIENT
  Age: 56 Year
  Sex: Male
  Weight: 81.18 kg

DRUGS (14)
  1. LIORESAL [Suspect]
     Active Substance: BACLOFEN
     Dosage: 96.1 ?G, \DAY (5 % DECREASE)
     Route: 037
     Dates: start: 20190314
  2. CLONAZEPAM. [Concomitant]
     Active Substance: CLONAZEPAM
     Dosage: 1.0 MG, 1X/DAY
     Route: 048
  3. SERTRALINE HCL [Concomitant]
     Active Substance: SERTRALINE HYDROCHLORIDE
     Dosage: 150 MG, 1X/DAY
     Route: 048
  4. MELATONIN [Concomitant]
     Active Substance: MELATONIN
     Dosage: 10 MG, 1X/DAYAT BEDTIME
     Route: 048
  5. TRAZODONE HYDROCHLORIDE. [Concomitant]
     Active Substance: TRAZODONE HYDROCHLORIDE
     Dosage: 100 MG, 1X/DAY AT BEDTIME
  6. LIORESAL [Suspect]
     Active Substance: BACLOFEN
     Indication: MUSCLE SPASTICITY
     Dosage: 2300 ?G/DAY TO AN UNKNOWN (ILLEGIBLE ON SOURCE DOCUMENT) AMOUNT ?G/DAY
     Route: 037
  7. LIORESAL [Suspect]
     Active Substance: BACLOFEN
     Indication: MULTIPLE SCLEROSIS
     Dosage: 671.4 ?G, \DAY (30% DECREASE)
     Route: 037
     Dates: start: 20181228
  8. ERGOCALCIFEROL (VIT D2) [Concomitant]
     Dosage: 1 CAPSULES, 1X/WEEK
     Route: 048
  9. TIZANIDINE HCL [Concomitant]
     Active Substance: TIZANIDINE HYDROCHLORIDE
     Dosage: 4 MG, 2X/DAY
     Route: 048
  10. ATORVASTATIN CALCIUM. [Concomitant]
     Active Substance: ATORVASTATIN CALCIUM
     Dosage: 10 MG, 1X/DAY
     Route: 048
  11. CLONAZEPAM. [Concomitant]
     Active Substance: CLONAZEPAM
     Dosage: 0.5 MG, 1X/DAY
     Route: 048
  12. BACLOFEN. [Concomitant]
     Active Substance: BACLOFEN
     Dosage: 20 MG, AS NEEDED UP TO 4X/DAY
     Route: 048
  13. FERROUS GLUCONATE [Concomitant]
     Active Substance: FERROUS GLUCONATE
     Dosage: 324 MG, 2X/DAY
     Route: 048
  14. MULTIVITAMIN [Concomitant]
     Active Substance: VITAMINS
     Dosage: 1 TABLETS, 1X/DAY
     Route: 048

REACTIONS (28)
  - Proteus test positive [None]
  - Fluid overload [Recovered/Resolved]
  - Device damage [Not Recovered/Not Resolved]
  - Renal failure [Recovered/Resolved]
  - Renal haematoma [Recovered/Resolved]
  - Urinary tract infection [Recovered/Resolved]
  - Duodenal ulcer haemorrhage [Recovered/Resolved]
  - Hypotension [Recovered/Resolved]
  - Asthenia [Recovered/Resolved]
  - Haemoglobin decreased [Recovered/Resolved]
  - Nephrolithiasis [Not Recovered/Not Resolved]
  - Food poisoning [Recovered/Resolved]
  - Acute kidney injury [None]
  - Septic shock [Recovered/Resolved]
  - Pyelonephritis [Recovered/Resolved]
  - Anaemia [Recovered/Resolved]
  - Nephropathy toxic [Not Recovered/Not Resolved]
  - Muscle spasticity [Recovered/Resolved]
  - Neurogenic bladder [Not Recovered/Not Resolved]
  - Implant site extravasation [Not Recovered/Not Resolved]
  - Device leakage [Not Recovered/Not Resolved]
  - Bacteraemia [Recovered/Resolved]
  - Respiratory failure [Recovered/Resolved]
  - Ureteric stenosis [Recovered/Resolved]
  - Renal atrophy [Unknown]
  - Pneumonia pseudomonal [None]
  - Atrial fibrillation [Unknown]
  - Diarrhoea [Unknown]

NARRATIVE: CASE EVENT DATE: 2003
